FAERS Safety Report 6537701-5 (Version None)
Quarter: 2010Q1

REPORT INFORMATION
  Report Type: 
  Country: None (occurrence: None)
  Receive Date: 20100107
  Receipt Date: 20091222
  Transmission Date: 20100710
  Serious: Yes (Hospitalization)
  Sender: FDA-Public Use
  Company Number: 2010AL000001

PATIENT
  Age: 44 Year
  Sex: Female

DRUGS (8)
  1. IBUPROFEN [Suspect]
     Indication: PAIN IN EXTREMITY
     Dosage: PO
     Route: 048
  2. COPAXONE [Concomitant]
  3. AMITRIPTYLINE HCL [Concomitant]
  4. BACLOFEN [Concomitant]
  5. GABAPENTIN [Concomitant]
  6. NIFEDIPINE [Concomitant]
  7. TRIMETHOPRIM [Concomitant]
  8. TROSPIUM CHLORIDE [Concomitant]

REACTIONS (6)
  - CHEST PAIN [None]
  - DYSPNOEA [None]
  - ELECTROCARDIOGRAM ABNORMAL [None]
  - GASTROOESOPHAGEAL REFLUX DISEASE [None]
  - MUSCLE TIGHTNESS [None]
  - PALPITATIONS [None]
